FAERS Safety Report 16234177 (Version 3)
Quarter: 2019Q4

REPORT INFORMATION
  Report Type: Spontaneous
  Country: US (occurrence: US)
  Receive Date: 20190424
  Receipt Date: 20191027
  Transmission Date: 20200122
  Serious: No
  Sender: FDA-Public Use
  Company Number: US-ARBOR PHARMACEUTICALS, LLC-US-2019ARB000264

PATIENT
  Sex: Female

DRUGS (2)
  1. TRIPTODUR [Suspect]
     Active Substance: TRIPTORELIN
     Dosage: UNK
     Route: 030
  2. TRIPTODUR [Suspect]
     Active Substance: TRIPTORELIN
     Indication: PRODUCT USED FOR UNKNOWN INDICATION
     Dosage: UNK, SINGLE
     Route: 030
     Dates: start: 20190103, end: 20190103

REACTIONS (3)
  - Emotional disorder [Unknown]
  - Acne [Unknown]
  - Metrorrhagia [Recovered/Resolved]

NARRATIVE: CASE EVENT DATE: 2019
